FAERS Safety Report 22658608 (Version 1)
Quarter: 2023Q2

REPORT INFORMATION
  Report Type: Spontaneous
  Country: US (occurrence: None)
  Receive Date: 20230629
  Receipt Date: 20230629
  Transmission Date: 20230722
  Serious: Yes (Hospitalization)
  Sender: FDA-Public Use
  Company Number: None

PATIENT
  Age: 62 Year
  Sex: Female
  Weight: 72 kg

DRUGS (13)
  1. BELBUCA [Suspect]
     Active Substance: BUPRENORPHINE HYDROCHLORIDE
  2. METOPROLOL [Concomitant]
     Active Substance: METOPROLOL
  3. BAYER LOW DOSE [Concomitant]
     Active Substance: ASPIRIN
  4. VENLAFAXINE [Concomitant]
     Active Substance: VENLAFAXINE HYDROCHLORIDE
  5. BUPROPION [Concomitant]
     Active Substance: BUPROPION
  6. NAPROXEN [Concomitant]
     Active Substance: NAPROXEN
  7. OXYCODONE [Concomitant]
     Active Substance: OXYCODONE
  8. XTAMPZA [Concomitant]
     Active Substance: OXYCODONE
  9. XANAX [Concomitant]
     Active Substance: ALPRAZOLAM
  10. Mult vitamin [Concomitant]
  11. CALCIUM [Concomitant]
     Active Substance: CALCIUM
  12. MAGNESIUM [Concomitant]
     Active Substance: MAGNESIUM
  13. VITAMIN D3 [Concomitant]
     Active Substance: CHOLECALCIFEROL

REACTIONS (4)
  - Tooth loss [None]
  - Tooth fracture [None]
  - Panic attack [None]
  - Oral candidiasis [None]

NARRATIVE: CASE EVENT DATE: 20230101
